FAERS Safety Report 5385320-9 (Version None)
Quarter: 2007Q3

REPORT INFORMATION
  Report Type: 
  Country: None (occurrence: None)
  Receive Date: 20070709
  Receipt Date: 20070709
  Transmission Date: 20080115
  Serious: Yes (Hospitalization)
  Sender: FDA-Public Use
  Company Number: None

PATIENT
  Age: 72 Year
  Sex: Male
  Weight: 69.8539 kg

DRUGS (2)
  1. SALSALATE [Suspect]
     Indication: MUSCULOSKELETAL PAIN
     Dosage: 500MG BID PRN PAIN PO
     Route: 048
     Dates: start: 20070327, end: 20070413
  2. WARFARIN SODIUM [Suspect]
     Indication: AORTIC VALVE REPLACEMENT
     Dosage: 5MG QDAY EXCEPT 2.5MG ON FRIDAYS PO
     Route: 048
     Dates: start: 20060907

REACTIONS (9)
  - CARDIAC ENZYMES INCREASED [None]
  - CARDIAC FAILURE CHRONIC [None]
  - CHRONIC OBSTRUCTIVE PULMONARY DISEASE [None]
  - DRUG TOXICITY [None]
  - HYPERKALAEMIA [None]
  - HYPOTENSION [None]
  - MUSCULOSKELETAL PAIN [None]
  - PULMONARY MASS [None]
  - RENAL FAILURE ACUTE [None]
